FAERS Safety Report 5056166-6 (Version None)
Quarter: 2006Q3

REPORT INFORMATION
  Report Type: 
  Country: None (occurrence: None)
  Receive Date: 20060717
  Receipt Date: 20060630
  Transmission Date: 20061208
  Serious: Yes (Other)
  Sender: FDA-Public Use
  Company Number: BR-2006-017817

PATIENT
  Age: 34 Year
  Sex: Female

DRUGS (3)
  1. BETASERON [Suspect]
     Indication: MULTIPLE SCLEROSIS
     Dosage: 1 ML, UNK, SUBCUTANEOUS
     Route: 058
     Dates: start: 20050101
  2. FLUOXETINE [Concomitant]
  3. CLONAZEPAM [Concomitant]

REACTIONS (6)
  - ABNORMAL BEHAVIOUR [None]
  - AMNESIA [None]
  - CONVULSION [None]
  - HEADACHE [None]
  - INJECTION SITE NECROSIS [None]
  - LOSS OF CONSCIOUSNESS [None]
